FAERS Safety Report 21409271 (Version 1)
Quarter: 2022Q4

REPORT INFORMATION
  Report Type: Spontaneous
  Country: US (occurrence: US)
  Receive Date: 20221004
  Receipt Date: 20221004
  Transmission Date: 20230113
  Serious: Yes (Other)
  Sender: FDA-Public Use
  Company Number: US-MYLANLABS-2022M1110519

PATIENT
  Age: 15 Year
  Sex: Male
  Weight: 86.64 kg

DRUGS (7)
  1. ARIPIPRAZOLE [Suspect]
     Active Substance: ARIPIPRAZOLE
     Indication: Dysphemia
     Dosage: 5 MILLIGRAM, QD
     Route: 065
  2. ARIPIPRAZOLE [Suspect]
     Active Substance: ARIPIPRAZOLE
     Dosage: 30 MILLIGRAM, QD
     Route: 065
  3. ARIPIPRAZOLE [Suspect]
     Active Substance: ARIPIPRAZOLE
     Dosage: INITIALLY STOPPED AND THEN RESTARTED AND CONTINUED
     Route: 065
  4. LURASIDONE [Suspect]
     Active Substance: LURASIDONE
     Indication: Dysphemia
     Dosage: 20 MILLIGRAM, QD
     Route: 065
  5. LURASIDONE [Suspect]
     Active Substance: LURASIDONE
     Dosage: 40 MILLIGRAM, QD
     Route: 065
  6. LURASIDONE [Suspect]
     Active Substance: LURASIDONE
     Dosage: 80 MILLIGRAM, QD
     Route: 065
  7. TOPIRAMATE [Concomitant]
     Active Substance: TOPIRAMATE
     Indication: Prophylaxis
     Dosage: 100 MILLIGRAM
     Route: 065

REACTIONS (3)
  - Weight increased [Recovering/Resolving]
  - Tardive dyskinesia [Recovered/Resolved]
  - Off label use [Recovering/Resolving]
